FAERS Safety Report 15773225 (Version 1)
Quarter: 2018Q4

REPORT INFORMATION
  Report Type: Spontaneous
  Country: TH (occurrence: TH)
  Receive Date: 20181228
  Receipt Date: 20181228
  Transmission Date: 20190205
  Serious: Yes (Hospitalization, Other)
  Sender: FDA-Public Use
  Company Number: TH-B.I. PHARMACEUTICALS,INC./RIDGEFIELD-2018-BI-061326

PATIENT
  Age: 55 Year
  Sex: Female

DRUGS (4)
  1. GILOTRIF [Suspect]
     Active Substance: AFATINIB
     Indication: LUNG NEOPLASM MALIGNANT
     Route: 065
     Dates: start: 20170627
  2. GILOTRIF [Suspect]
     Active Substance: AFATINIB
     Route: 065
  3. GILOTRIF [Suspect]
     Active Substance: AFATINIB
     Route: 065
  4. GILOTRIF [Suspect]
     Active Substance: AFATINIB
     Route: 065

REACTIONS (7)
  - Diarrhoea [Unknown]
  - Skin disorder [Unknown]
  - Diarrhoea [Unknown]
  - Rash maculo-papular [Unknown]
  - Blastocystis infection [Unknown]
  - Acute kidney injury [Unknown]
  - Malignant neoplasm progression [Unknown]

NARRATIVE: CASE EVENT DATE: 20170718
